FAERS Safety Report 11012460 (Version 1)
Quarter: 2015Q2

REPORT INFORMATION
  Report Type: Spontaneous
  Country: US (occurrence: None)
  Receive Date: 20150410
  Receipt Date: 20150410
  Transmission Date: 20150821
  Serious: No
  Sender: FDA-Public Use
  Company Number: None

PATIENT

DRUGS (1)
  1. LYRICA [Suspect]
     Active Substance: PREGABALIN
     Indication: PAIN
     Dosage: ONE BID ORAL
     Route: 048
     Dates: start: 20150409, end: 20150409

REACTIONS (3)
  - Product physical issue [None]
  - Product packaging counterfeit [None]
  - Product counterfeit [None]

NARRATIVE: CASE EVENT DATE: 20150409
